FAERS Safety Report 11080902 (Version 1)
Quarter: 2015Q2

REPORT INFORMATION
  Report Type: Spontaneous
  Country: US (occurrence: US)
  Receive Date: 20150501
  Receipt Date: 20150501
  Transmission Date: 20150821
  Serious: No
  Sender: FDA-Public Use
  Company Number: US-ASTRAZENECA-2015SE36523

PATIENT
  Age: 51 Year
  Sex: Female

DRUGS (7)
  1. NEXIUM [Suspect]
     Active Substance: ESOMEPRAZOLE MAGNESIUM
     Route: 048
  2. LODRANE D [Suspect]
     Active Substance: BROMPHENIRAMINE MALEATE\PSEUDOEPHEDRINE HYDROCHLORIDE
     Route: 065
  3. ZOCOR [Suspect]
     Active Substance: SIMVASTATIN
     Route: 065
  4. TYLENOL [Suspect]
     Active Substance: ACETAMINOPHEN
     Route: 065
  5. LYRICA [Suspect]
     Active Substance: PREGABALIN
     Route: 065
  6. LEVAQUIN [Suspect]
     Active Substance: LEVOFLOXACIN
     Route: 065
  7. CLINDAMYCIN HCL [Suspect]
     Active Substance: CLINDAMYCIN HYDROCHLORIDE
     Route: 065

REACTIONS (1)
  - Drug hypersensitivity [Unknown]
